FAERS Safety Report 8984596 (Version 1)
Quarter: 2012Q4

REPORT INFORMATION
  Report Type: 
  Country: BR (occurrence: BR)
  Receive Date: 20121225
  Receipt Date: 20121225
  Transmission Date: 20130627
  Serious: Yes (Other)
  Sender: FDA-Public Use
  Company Number: BR-SANOFI-AVENTIS-2012SA092024

PATIENT
  Age: 8 Month
  Sex: Male
  Weight: 5.2 kg

DRUGS (1)
  1. CLEXANE [Suspect]
     Indication: DRUG USE FOR UNKNOWN INDICATION
     Dosage: strength:40 mg
     Route: 064

REACTIONS (3)
  - Underweight [Not Recovered/Not Resolved]
  - Exposure during pregnancy [Unknown]
  - Syringe issue [Unknown]
